FAERS Safety Report 7911789-9 (Version None)
Quarter: 2011Q4

REPORT INFORMATION
  Report Type: 
  Country: None (occurrence: None)
  Receive Date: 20111114
  Receipt Date: 20111114
  Transmission Date: 20120403
  Serious: No
  Sender: FDA-Public Use
  Company Number: None

PATIENT
  Age: 4 Year
  Sex: Female
  Weight: 20.865 kg

DRUGS (3)
  1. AMOXICILLIN [Suspect]
     Indication: EAR INFECTION
     Dosage: 6.5ML
     Route: 048
     Dates: start: 20111107, end: 20111113
  2. SINGULAIR [Concomitant]
     Indication: ASTHMA
     Dosage: 4MG
     Route: 048
     Dates: start: 20111019, end: 20111029
  3. SINGULAIR [Concomitant]
     Indication: MULTIPLE ALLERGIES
     Dosage: 4MG
     Route: 048
     Dates: start: 20111019, end: 20111029

REACTIONS (4)
  - EMOTIONAL DISORDER [None]
  - ABNORMAL BEHAVIOUR [None]
  - PSYCHOMOTOR HYPERACTIVITY [None]
  - OPPOSITIONAL DEFIANT DISORDER [None]
